FAERS Safety Report 7200701-6 (Version None)
Quarter: 2010Q4

REPORT INFORMATION
  Report Type: 
  Country: None (occurrence: None)
  Receive Date: 20101215
  Receipt Date: 20101203
  Transmission Date: 20110411
  Serious: Yes (Other)
  Sender: FDA-Public Use
  Company Number: 023242

PATIENT
  Sex: Male
  Weight: 85 kg

DRUGS (9)
  1. KEPPRA [Suspect]
     Indication: CONVULSION
     Dosage: 1500 MG BID ORAL
     Route: 048
     Dates: start: 20090401
  2. TOPAMAX [Concomitant]
  3. DESVENLAFAXIN [Concomitant]
  4. CLONAZEPAM [Concomitant]
  5. METOPROLOL SUCCINATE [Concomitant]
  6. LISINOPRIL [Concomitant]
  7. LIPITOR [Concomitant]
  8. NEXIUM [Concomitant]
  9. SEROQUEL [Concomitant]

REACTIONS (1)
  - GRAND MAL CONVULSION [None]
